FAERS Safety Report 16035450 (Version 3)
Quarter: 2019Q2

REPORT INFORMATION
  Report Type: Spontaneous
  Country: US (occurrence: US)
  Receive Date: 20190305
  Receipt Date: 20190529
  Transmission Date: 20190711
  Serious: Yes (Hospitalization, Other)
  Sender: FDA-Public Use
  Company Number: US-BAYER-2019-023568

PATIENT
  Age: 37 Year
  Sex: Male

DRUGS (12)
  1. BETASERON [Suspect]
     Active Substance: INTERFERON BETA-1B
     Indication: BRAIN STEM SYNDROME
     Dosage: 0.25 ML,QOD
     Route: 058
     Dates: start: 20190125
  2. BETASERON [Suspect]
     Active Substance: INTERFERON BETA-1B
     Indication: POST VIRAL FATIGUE SYNDROME
     Dosage: 0.25 ML,QOD
     Route: 058
     Dates: start: 20190105, end: 20190305
  3. MAGNESIUM [Concomitant]
     Active Substance: MAGNESIUM
  4. BIOFLAVONOIDS [Concomitant]
     Active Substance: BIOFLAVONOIDS
  5. BIOFLAVONOID [Concomitant]
     Active Substance: BIOFLAVONOIDS
  6. EPIVIR HBV [Concomitant]
     Active Substance: LAMIVUDINE
     Dosage: UNK
  7. GENISTEIN [Concomitant]
     Active Substance: GENISTEIN
     Dosage: UNK
  8. RUTIN [ASCORBIC ACID;RUTOSIDE] [Concomitant]
  9. BORON [Concomitant]
     Active Substance: BORON
     Dosage: UNK
  10. DIHYDROQUERCETIN [Concomitant]
  11. LAMIVUDINE. [Concomitant]
     Active Substance: LAMIVUDINE
  12. POTASSIUM [Concomitant]
     Active Substance: POTASSIUM

REACTIONS (7)
  - Product use in unapproved indication [None]
  - Agitation [Not Recovered/Not Resolved]
  - Injection site extravasation [Recovered/Resolved]
  - Injection site extravasation [Recovered/Resolved]
  - Off label use [None]
  - Depression suicidal [Not Recovered/Not Resolved]
  - Enterovirus infection [None]

NARRATIVE: CASE EVENT DATE: 20190227
